FAERS Safety Report 24730673 (Version 1)
Quarter: 2024Q4

REPORT INFORMATION
  Report Type: Spontaneous
  Country: US (occurrence: US)
  Receive Date: 20241213
  Receipt Date: 20241213
  Transmission Date: 20250115
  Serious: No
  Sender: BIOVITRUM
  Company Number: US-BIOVITRUM-2024-US-014349

PATIENT
  Age: 69 Year
  Sex: Male

DRUGS (3)
  1. DOPTELET [Suspect]
     Active Substance: AVATROMBOPAG MALEATE
     Indication: Hepatocellular carcinoma
     Dosage: DAILY
     Route: 048
     Dates: start: 20241024, end: 20241206
  2. DOPTELET [Suspect]
     Active Substance: AVATROMBOPAG MALEATE
     Indication: Hepatitis C
  3. ACYCLOVIR [Suspect]
     Active Substance: ACYCLOVIR
     Indication: Product used for unknown indication

REACTIONS (8)
  - Fatigue [Unknown]
  - Nasopharyngitis [Unknown]
  - Platelet count abnormal [Unknown]
  - Off label use [Recovered/Resolved]
  - Oral herpes [Unknown]
  - Pruritus [Unknown]
  - Dry mouth [Unknown]
  - Adverse drug reaction [Unknown]

NARRATIVE: CASE EVENT DATE: 20241024
